FAERS Safety Report 10186742 (Version 2)
Quarter: 2014Q2

REPORT INFORMATION
  Report Type: Report from Study
  Country: US (occurrence: US)
  Receive Date: 20140521
  Receipt Date: 20140625
  Transmission Date: 20141212
  Serious: Yes (Hospitalization, Disabling)
  Sender: FDA-Public Use
  Company Number: PHEH2014US009767

PATIENT
  Sex: Male

DRUGS (2)
  1. FANAPT [Suspect]
     Indication: SCHIZOAFFECTIVE DISORDER
     Dosage: 8 MG, BID
     Route: 048
     Dates: end: 20140407
  2. METFORMIN [Concomitant]
     Indication: DIABETES MELLITUS
     Dosage: UNK UKN, UNK
     Route: 048

REACTIONS (4)
  - Abnormal behaviour [Recovered/Resolved]
  - Irritability [Unknown]
  - Aggression [Recovered/Resolved]
  - Drug ineffective [Unknown]
